FAERS Safety Report 8956596 (Version 2)
Quarter: 2013Q1

REPORT INFORMATION
  Report Type: Report from Study
  Country: CA (occurrence: CA)
  Receive Date: 20121210
  Receipt Date: 20130121
  Transmission Date: 20140127
  Serious: Yes (Other)
  Sender: FDA-Public Use
  Company Number: CA-JNJFOC-20121115157

PATIENT
  Sex: Female
  Weight: 79.5 kg

DRUGS (4)
  1. REMICADE [Suspect]
     Indication: COLITIS ULCERATIVE
     Route: 042
  2. REMICADE [Suspect]
     Indication: COLITIS ULCERATIVE
     Dosage: 11 INFUSIONS TO DATE
     Route: 042
  3. MEZAVANT [Concomitant]
     Route: 065
  4. ALESSE [Concomitant]
     Indication: ORAL CONTRACEPTION
     Route: 065

REACTIONS (2)
  - Fistula [Unknown]
  - Colitis ulcerative [Unknown]
